FAERS Safety Report 13377158 (Version 2)
Quarter: 2019Q1

REPORT INFORMATION
  Report Type: Spontaneous
  Country: GB (occurrence: GB)
  Receive Date: 20170328
  Receipt Date: 20190204
  Transmission Date: 20190417
  Serious: Yes (Other)
  Sender: FDA-Public Use
  Company Number: GB-MYLANLABS-2017M1017769

PATIENT
  Sex: Female

DRUGS (15)
  1. OXPRENOLOL [Suspect]
     Active Substance: OXPRENOLOL
     Dosage: 150 MILLIGRAM
  2. BISOPROLOL [Suspect]
     Active Substance: BISOPROLOL
     Indication: HYPERTENSION
     Dosage: ALSO RECEIVED 1.25 MG SINCE NOV 2016
  3. LANSOPRAZOLE. [Suspect]
     Active Substance: LANSOPRAZOLE
     Indication: PRODUCT USED FOR UNKNOWN INDICATION
     Dosage: ONLY TAKE ON ODD OCCASIONS
     Route: 065
  4. DOXAZOSIN [Suspect]
     Active Substance: DOXAZOSIN\DOXAZOSIN MESYLATE
     Indication: HYPERTENSION
     Dosage: 4 MILLIGRAM
     Route: 065
     Dates: start: 1990
  5. PROLIA [Suspect]
     Active Substance: DENOSUMAB
     Indication: OSTEOPOROSIS
     Dosage: SECOND INJECTION WAS SUPPOSED TO BE ON 14-FEB-2017 BUT THIS WAS CANCELLED
     Route: 065
     Dates: start: 201608
  6. AMLODIPINE [Suspect]
     Active Substance: AMLODIPINE BESYLATE
     Indication: HYPERTENSION
     Dosage: 5 MILLIGRAM
     Dates: start: 201307
  7. BISOPROLOL SANDOZ [Suspect]
     Active Substance: BISOPROLOL
     Indication: PRODUCT USED FOR UNKNOWN INDICATION
     Dosage: 5 MG, UNK
     Route: 065
     Dates: start: 201502
  8. BISOPROLOL SANDOZ [Suspect]
     Active Substance: BISOPROLOL
     Dosage: 1.25 MILLIGRAM
     Route: 065
     Dates: start: 201611
  9. ADCAL D3 [Suspect]
     Active Substance: CALCIUM CARBONATE\CHOLECALCIFEROL
     Indication: OSTEOPOROSIS
     Dosage: UNK
     Route: 065
     Dates: start: 201402
  10. ARIPIPRAZOLE. [Suspect]
     Active Substance: ARIPIPRAZOLE
     Dosage: INCREASED TO 5 MG IN JAN-2017
  11. ALENDRONATE [Suspect]
     Active Substance: ALENDRONATE SODIUM
     Indication: OSTEOPOROSIS
     Dosage: 70 MG, UNK
     Route: 048
     Dates: start: 201402, end: 201608
  12. AMITRIPTYLINE [Suspect]
     Active Substance: AMITRIPTYLINE
     Indication: PRODUCT USED FOR UNKNOWN INDICATION
     Dosage: TAKEN 2 X 50 MG ONLY TAKE ON ODD OCCASIONS
     Route: 065
  13. OXPRENOLOL [Suspect]
     Active Substance: OXPRENOLOL
     Indication: HYPERTENSION
     Dosage: 160 MG, UNK
     Route: 065
  14. ARIPIPRAZOLE. [Suspect]
     Active Substance: ARIPIPRAZOLE
     Indication: PRODUCT USED FOR UNKNOWN INDICATION
     Dosage: 5 MILLIGRAM
     Route: 065
     Dates: start: 201701
  15. SANDOZ AMLODIPINE                  /00972402/ [Suspect]
     Active Substance: AMLODIPINE BESYLATE
     Indication: PRODUCT USED FOR UNKNOWN INDICATION
     Dosage: UNK
     Route: 065
     Dates: start: 201307

REACTIONS (19)
  - Rectal prolapse [Unknown]
  - Constipation [Unknown]
  - Burning sensation [Unknown]
  - Chest discomfort [Unknown]
  - Influenza [Unknown]
  - Influenza like illness [Unknown]
  - Rhinorrhoea [Unknown]
  - Infection [Recovering/Resolving]
  - Dyspnoea [Unknown]
  - Dysuria [Unknown]
  - Erythema [Unknown]
  - Abdominal discomfort [Unknown]
  - Urinary tract infection [Unknown]
  - Headache [Unknown]
  - Pain [Unknown]
  - Bone pain [Unknown]
  - Arthralgia [Unknown]
  - Muscle spasms [Unknown]
  - Myalgia [Unknown]
